FAERS Safety Report 8971610 (Version 1)
Quarter: 2012Q4

REPORT INFORMATION
  Report Type: 
  Country: CA (occurrence: CA)
  Receive Date: 20121217
  Receipt Date: 20121217
  Transmission Date: 20130627
  Serious: Yes (Life-Threatening, Hospitalization)
  Sender: FDA-Public Use
  Company Number: CA-B.I. PHARMACEUTICALS,INC./RIDGEFIELD-2012-CN-02572CN

PATIENT
  Age: 88 Year
  Sex: Female

DRUGS (5)
  1. PRADAX [Suspect]
     Dosage: 2.0 dosage forms
     Route: 048
  2. ACETAMINOPHEN [Concomitant]
  3. DIGOXIN [Concomitant]
  4. DIMENHYDRINATE [Concomitant]
  5. FUROSEMIDE [Concomitant]

REACTIONS (3)
  - Blood product transfusion [Recovered/Resolved]
  - Lower gastrointestinal haemorrhage [Recovered/Resolved]
  - Transfusion [Recovered/Resolved]
